FAERS Safety Report 10089185 (Version 2)
Quarter: 2014Q2

REPORT INFORMATION
  Report Type: Spontaneous
  Country: FI (occurrence: FI)
  Receive Date: 20140421
  Receipt Date: 20140506
  Transmission Date: 20141212
  Serious: Yes (Other)
  Sender: FDA-Public Use
  Company Number: FI-JNJFOC-20140411612

PATIENT
  Sex: Male

DRUGS (11)
  1. SIMPONI [Suspect]
     Indication: ANKYLOSING SPONDYLITIS
     Route: 058
     Dates: start: 20121211
  2. PREDNISOLON [Suspect]
     Indication: ANKYLOSING SPONDYLITIS
     Route: 048
     Dates: start: 20100608
  3. METHOTREXATE [Suspect]
     Indication: ANKYLOSING SPONDYLITIS
     Dosage: PER A WEEK ON SUNDAYS
     Route: 048
     Dates: start: 20100302
  4. SALAZOPYRIN EN [Concomitant]
     Indication: ANKYLOSING SPONDYLITIS
     Dosage: 2X3
     Route: 048
     Dates: start: 200810
  5. ARTHRYL [Concomitant]
     Indication: OSTEOARTHRITIS
     Route: 048
  6. AMLODIPINE [Concomitant]
     Indication: BLOOD PRESSURE
     Dosage: 1X1
     Route: 048
  7. ATACAND [Concomitant]
     Indication: BLOOD PRESSURE
     Dosage: 1X1
     Route: 048
  8. FOLIC ACID [Concomitant]
     Dosage: 5-10 HOURS AFTER INTAKE OF TREXAN
     Route: 048
     Dates: start: 201003
  9. ZOLT [Concomitant]
     Route: 065
  10. ARCOXIA [Concomitant]
     Dosage: IF NEEDED 1 TABLET PER DAY
     Route: 065
  11. IMIGRAN RADIS [Concomitant]
     Route: 065

REACTIONS (1)
  - Renal cancer [Recovered/Resolved]
